FAERS Safety Report 7801868-9 (Version None)
Quarter: 2011Q4

REPORT INFORMATION
  Report Type: 
  Country: None (occurrence: None)
  Receive Date: 20111007
  Receipt Date: 20111004
  Transmission Date: 20120403
  Serious: Yes (Other)
  Sender: FDA-Public Use
  Company Number: US-PFIZER INC-2011194466

PATIENT
  Sex: Female

DRUGS (1)
  1. CHANTIX [Suspect]
     Dosage: UNK

REACTIONS (4)
  - NIGHTMARE [None]
  - INSOMNIA [None]
  - CHRONIC OBSTRUCTIVE PULMONARY DISEASE [None]
  - ABNORMAL DREAMS [None]
